FAERS Safety Report 9372793 (Version 1)
Quarter: 2013Q2

REPORT INFORMATION
  Report Type: Report from Study
  Country: US (occurrence: US)
  Receive Date: 20130627
  Receipt Date: 20130627
  Transmission Date: 20140414
  Serious: Yes (Other)
  Sender: FDA-Public Use
  Company Number: US-MYLANLABS-2013S1008948

PATIENT
  Age: 51 Year
  Sex: Male
  Weight: 142.88 kg

DRUGS (4)
  1. CLOZAPINE TABLETS [Suspect]
     Indication: SCHIZOPHRENIA, UNDIFFERENTIATED TYPE
     Dates: start: 20010208, end: 20130420
  2. CLOZAPINE TABLETS [Suspect]
     Indication: SCHIZOPHRENIA, UNDIFFERENTIATED TYPE
     Dates: start: 20010208, end: 20130420
  3. CLOZAPINE TABLETS [Suspect]
     Indication: SCHIZOPHRENIA, UNDIFFERENTIATED TYPE
     Dates: start: 20010208, end: 20130420
  4. INTERFERON [Suspect]
     Indication: HEPATITIS C
     Dates: start: 20130206

REACTIONS (2)
  - Granulocytopenia [Not Recovered/Not Resolved]
  - Leukopenia [Recovered/Resolved]
